FAERS Safety Report 17228321 (Version 1)
Quarter: 2020Q1

REPORT INFORMATION
  Report Type: Spontaneous
  Country: JP (occurrence: JP)
  Receive Date: 20200103
  Receipt Date: 20200103
  Transmission Date: 20200409
  Serious: Yes (Hospitalization, Other)
  Sender: FDA-Public Use
  Company Number: JP-LUPIN PHARMACEUTICALS INC.-2019-08069

PATIENT
  Age: 29 Year
  Sex: Male
  Weight: 50 kg

DRUGS (10)
  1. SULFAMETHOXAZOLE AND TRIMETHOPRIM [Suspect]
     Active Substance: SULFAMETHOXAZOLE\TRIMETHOPRIM
     Dosage: 112 MG TRIMETHOPRIM/560 MG SULFAMETHOXAZOLE AT DAY 30
     Route: 051
  2. CLINDAMYCIN. [Suspect]
     Active Substance: CLINDAMYCIN
     Indication: CEREBRAL TOXOPLASMOSIS
     Dosage: 1800 MILLIGRAM, QD
     Route: 051
  3. SULFAMETHOXAZOLE AND TRIMETHOPRIM [Suspect]
     Active Substance: SULFAMETHOXAZOLE\TRIMETHOPRIM
     Dosage: 24 MG TRIMETHOPRIM/120 MG SULFAMETHOXAZOLE AT DAY 9
     Route: 051
  4. SULFAMETHOXAZOLE AND TRIMETHOPRIM [Suspect]
     Active Substance: SULFAMETHOXAZOLE\TRIMETHOPRIM
     Dosage: 64 MG TRIMETHOPRIM/320 MG SULFAMETHOXAZOLE AT DAY 11
     Route: 051
  5. FLUCONAZOLE. [Concomitant]
     Active Substance: FLUCONAZOLE
     Indication: ORAL CANDIDIASIS
     Dosage: 200 MILLIGRAM
     Route: 065
  6. ATOVAQUONE. [Suspect]
     Active Substance: ATOVAQUONE
     Indication: CEREBRAL TOXOPLASMOSIS
     Dosage: UNK
     Route: 048
  7. SULFAMETHOXAZOLE AND TRIMETHOPRIM [Suspect]
     Active Substance: SULFAMETHOXAZOLE\TRIMETHOPRIM
     Dosage: 48 MG TRIMETHOPRIM/240 MG SULFAMETHOXAZOLE AT DAY 10
     Route: 051
  8. SULFAMETHOXAZOLE AND TRIMETHOPRIM [Suspect]
     Active Substance: SULFAMETHOXAZOLE\TRIMETHOPRIM
     Dosage: 160 MG TRIMETHOPRIM/800 MG SULFAMETHOXAZOLE AT DAY 37
     Route: 051
  9. SULFAMETHOXAZOLE AND TRIMETHOPRIM [Suspect]
     Active Substance: SULFAMETHOXAZOLE\TRIMETHOPRIM
     Indication: CEREBRAL TOXOPLASMOSIS
     Dosage: 1 DOSAGE FORM (2400 MG /480 MG )
     Route: 051
  10. SULFAMETHOXAZOLE AND TRIMETHOPRIM [Suspect]
     Active Substance: SULFAMETHOXAZOLE\TRIMETHOPRIM
     Dosage: 80 MG TRIMETHOPRIM/400 MG SULFAMETHOXAZOLE AT DAY 18
     Route: 051

REACTIONS (4)
  - Drug intolerance [Unknown]
  - Rash morbilliform [Unknown]
  - Pyrexia [Unknown]
  - Transaminases increased [Recovering/Resolving]
